FAERS Safety Report 15209184 (Version 1)
Quarter: 2018Q3

REPORT INFORMATION
  Report Type: Report from Study
  Country: IT (occurrence: IT)
  Receive Date: 20180727
  Receipt Date: 20180727
  Transmission Date: 20181010
  Serious: Yes (Hospitalization)
  Sender: FDA-Public Use
  Company Number: IT-TEVA-2018-IT-931203

PATIENT
  Age: 72 Year
  Sex: Male

DRUGS (8)
  1. LYRICA [Concomitant]
     Active Substance: PREGABALIN
  2. PANTOPRAZOLE [Concomitant]
     Active Substance: PANTOPRAZOLE
  3. LORAZEPAM ABC 1 MG COMPRESSE RIVESTITE CON FILM [Concomitant]
  4. LAROXYL 40 MG/ML GOCCE ORALI SOLUZIONE [Concomitant]
     Active Substance: AMITRIPTYLINE HYDROCHLORIDE
  5. TORASEMIDE [Concomitant]
     Active Substance: TORSEMIDE
  6. ACICLIN 5% CREMA [Concomitant]
  7. ACICLOVIR [Suspect]
     Active Substance: ACYCLOVIR
     Indication: OPHTHALMIC HERPES SIMPLEX
     Dosage: 4000 MILLIGRAM DAILY;
     Route: 048
     Dates: start: 20180425, end: 20180514
  8. COLBIOCIN 10 MG/G / 180.000 UI/G / 5 MG/G UNGUENTO OFTALMICO [Concomitant]

REACTIONS (4)
  - Decreased appetite [Recovering/Resolving]
  - Asthenia [Recovering/Resolving]
  - Nausea [Recovering/Resolving]
  - Vomiting [Recovering/Resolving]

NARRATIVE: CASE EVENT DATE: 20180507
